FAERS Safety Report 12169713 (Version 1)
Quarter: 2016Q1

REPORT INFORMATION
  Report Type: Other
  Country: US (occurrence: US)
  Receive Date: 20160310
  Receipt Date: 20160310
  Transmission Date: 20160526
  Serious: Yes (Other)
  Sender: FDA-Public Use
  Company Number: US-GUTHY-RENKER LLC-1048906

PATIENT
  Age: 47 Year
  Sex: Female

DRUGS (2)
  1. IT COSMETICS BYE BYE FOUNDATION SPF 50+ [Suspect]
     Active Substance: TITANIUM DIOXIDE\ZINC OXIDE
     Indication: PROPHYLAXIS
     Route: 061
     Dates: start: 20160110, end: 20160213
  2. IT COSMETICS BYE BYE FOUNDATION SPF 50+ [Suspect]
     Active Substance: TITANIUM DIOXIDE\ZINC OXIDE
     Indication: PHOTOSENSITIVITY REACTION
     Route: 061
     Dates: start: 20160110, end: 20160213

REACTIONS (4)
  - Migraine [None]
  - Haemoptysis [Recovered/Resolved]
  - Hypersensitivity [None]
  - Epistaxis [None]

NARRATIVE: CASE EVENT DATE: 20160213
